FAERS Safety Report 11494699 (Version 1)
Quarter: 2015Q3

REPORT INFORMATION
  Report Type: Spontaneous
  Country: IE (occurrence: IE)
  Receive Date: 20150911
  Receipt Date: 20150911
  Transmission Date: 20151125
  Serious: Yes (Other)
  Sender: FDA-Public Use
  Company Number: IE-009507513-1509IRL004928

PATIENT
  Sex: Male

DRUGS (1)
  1. SINGULAIR [Suspect]
     Active Substance: MONTELUKAST SODIUM
     Dosage: UNK, VIA FEEDING TUBE
     Route: 050

REACTIONS (3)
  - Epilepsy [Unknown]
  - Off label use [Unknown]
  - Gastrointestinal tube insertion [Unknown]
